FAERS Safety Report 13367721 (Version 1)
Quarter: 2017Q1

REPORT INFORMATION
  Report Type: Spontaneous
  Country: NL (occurrence: NL)
  Receive Date: 20170324
  Receipt Date: 20170324
  Transmission Date: 20170429
  Serious: Yes (Other)
  Sender: FDA-Public Use
  Company Number: NL-TEVA-750075ROM

PATIENT
  Sex: Male

DRUGS (1)
  1. BECLOMETASON 100 CYCLOCAPS, INHALATIEPOEDER IN PATRONEN 78,5 MICROGRAM [Suspect]
     Active Substance: BECLOMETHASONE DIPROPIONATE
     Route: 055

REACTIONS (2)
  - Foreign body aspiration [Unknown]
  - Device issue [Unknown]
